FAERS Safety Report 14870918 (Version 1)
Quarter: 2018Q2

REPORT INFORMATION
  Report Type: Spontaneous
  Country: ZA (occurrence: ZA)
  Receive Date: 20180509
  Receipt Date: 20180509
  Transmission Date: 20180711
  Serious: Yes (Disabling, Other)
  Sender: FDA-Public Use
  Company Number: ZA-SEPTODONT-201804644

PATIENT
  Age: 43 Year
  Sex: Female

DRUGS (1)
  1. LIGNOSPAN SPECIAL [Suspect]
     Active Substance: EPINEPHRINE BITARTRATE\LIDOCAINE HYDROCHLORIDE
     Indication: DENTAL LOCAL ANAESTHESIA
     Dosage: BY NERVE BLOCK
     Dates: start: 20180411

REACTIONS (6)
  - Pain [Recovered/Resolved with Sequelae]
  - Rash [Recovered/Resolved with Sequelae]
  - Emotional distress [None]
  - Herpes zoster [Recovered/Resolved]
  - Scar [None]
  - Swelling face [Recovered/Resolved with Sequelae]

NARRATIVE: CASE EVENT DATE: 20180413
